FAERS Safety Report 9780541 (Version 2)
Quarter: 2014Q1

REPORT INFORMATION
  Report Type: Spontaneous
  Country: US (occurrence: US)
  Receive Date: 20131224
  Receipt Date: 20140327
  Transmission Date: 20141002
  Serious: Yes (Other)
  Sender: FDA-Public Use
  Company Number: US-BRISTOL-MYERS SQUIBB COMPANY-19915180

PATIENT
  Age: 30 Year
  Sex: Female

DRUGS (3)
  1. ABILIFY [Suspect]
     Dates: start: 2012, end: 2012
  2. DEPAKOTE [Concomitant]
  3. FLUPHENAZINE [Concomitant]

REACTIONS (2)
  - Loss of consciousness [Unknown]
  - Muscle spasms [Unknown]
